FAERS Safety Report 6547235-X (Version None)
Quarter: 2010Q1

REPORT INFORMATION
  Report Type: 
  Country: None (occurrence: None)
  Receive Date: 20100119
  Receipt Date: 20100104
  Transmission Date: 20100710
  Serious: Yes (Other)
  Sender: FDA-Public Use
  Company Number: 2009AC000259

PATIENT
  Age: 77 Year
  Sex: Female

DRUGS (27)
  1. DIGOXIN [Suspect]
     Dosage: .25 MG; QD; PO
     Route: 048
  2. LISINOPRIL [Concomitant]
  3. NIFEDICAL [Concomitant]
  4. METOPROLOL [Concomitant]
  5. LOVATATIN [Concomitant]
  6. INSULIN [Concomitant]
  7. LEVOTHYROXINE SODIUM [Concomitant]
  8. LORAZEPAM [Concomitant]
  9. HUMULIN R [Concomitant]
  10. ALBUTEROL [Concomitant]
  11. XANAX [Concomitant]
  12. IPRATROPIUM [Concomitant]
  13. ASPIRIN [Concomitant]
  14. VIACTIV [Concomitant]
  15. NIFEDIPINE [Concomitant]
  16. ACTOS [Concomitant]
  17. CEPHALEXIN [Concomitant]
  18. LEVOTHYROXINE SODIUM [Concomitant]
  19. NIFEDICAL [Concomitant]
  20. LISINOPRIL [Concomitant]
  21. CLOTRIMAZOLE [Concomitant]
  22. AMOXICILLIN [Concomitant]
  23. LOPROX [Concomitant]
  24. MINOCYCLINE HCL [Concomitant]
  25. MOMETASONE FUROATE [Concomitant]
  26. HUMULIN R [Concomitant]
  27. CEPHALEXIN [Concomitant]

REACTIONS (19)
  - CAROTID ARTERY STENOSIS [None]
  - CONJUNCTIVAL ABRASION [None]
  - CONTUSION [None]
  - COUGH [None]
  - DIABETES MELLITUS [None]
  - ECONOMIC PROBLEM [None]
  - EPISTAXIS [None]
  - EYE PAIN [None]
  - FACIAL BONES FRACTURE [None]
  - FALL [None]
  - FREQUENT BOWEL MOVEMENTS [None]
  - HEAD INJURY [None]
  - INJURY [None]
  - LACRIMATION INCREASED [None]
  - LOSS OF EMPLOYMENT [None]
  - OROPHARYNGEAL PAIN [None]
  - PAIN [None]
  - PYREXIA [None]
  - SOCIAL AVOIDANT BEHAVIOUR [None]
